FAERS Safety Report 11234633 (Version 1)
Quarter: 2015Q3

REPORT INFORMATION
  Report Type: Spontaneous
  Country: CA (occurrence: CA)
  Receive Date: 20150702
  Receipt Date: 20150702
  Transmission Date: 20151125
  Serious: Yes (Other)
  Sender: FDA-Public Use
  Company Number: CA-TEVA-575101ACC

PATIENT
  Age: 84 Year
  Sex: Female
  Weight: 72 kg

DRUGS (13)
  1. ROSUVASTATIN [Suspect]
     Active Substance: ROSUVASTATIN
     Indication: HYPERLIPIDAEMIA
     Dosage: 20 MILLIGRAM DAILY;
     Route: 065
  2. RATIO-CITALOPRAM [Concomitant]
  3. TECTA [Concomitant]
     Active Substance: PANTOPRAZOLE MAGNESIUM
  4. RISEDRONATE SODIUM. [Suspect]
     Active Substance: RISEDRONATE SODIUM
     Indication: OSTEOPOROSIS
     Dosage: 5 MILLIGRAM DAILY;
     Route: 048
  5. CODEINE [Concomitant]
     Active Substance: CODEINE
  6. METOPROLOL [Concomitant]
     Active Substance: METOPROLOL
  7. PROTOPIC [Concomitant]
     Active Substance: TACROLIMUS
     Route: 061
  8. CALCIUM [Concomitant]
     Active Substance: CALCIUM
  9. CLONAZEPAM. [Concomitant]
     Active Substance: CLONAZEPAM
  10. NASONEX [Concomitant]
     Active Substance: MOMETASONE FUROATE
  11. DOVONEX [Concomitant]
     Active Substance: CALCIPOTRIENE
  12. HYDROCORTISONE. [Concomitant]
     Active Substance: HYDROCORTISONE
  13. VITAMIN D [Concomitant]
     Active Substance: CHOLECALCIFEROL

REACTIONS (5)
  - Rash [Unknown]
  - Actinic keratosis [Unknown]
  - Product substitution issue [Unknown]
  - Condition aggravated [Unknown]
  - Psoriasis [Unknown]
